FAERS Safety Report 5254368-7 (Version None)
Quarter: 2007Q1

REPORT INFORMATION
  Report Type: 
  Country: None (occurrence: None)
  Receive Date: 20070302
  Receipt Date: 20070221
  Transmission Date: 20070707
  Serious: Yes (Other)
  Sender: FDA-Public Use
  Company Number: IT-ABBOTT-07P-083-0359914-00

PATIENT
  Sex: Female

DRUGS (2)
  1. KLACID [Suspect]
     Indication: BRONCHOPNEUMONIA
     Route: 048
     Dates: start: 20070124, end: 20070128
  2. GLICLAZIDE [Concomitant]
     Indication: DRUG USE FOR UNKNOWN INDICATION
     Route: 048

REACTIONS (1)
  - HYPOACUSIS [None]
